FAERS Safety Report 7170237-X (Version None)
Quarter: 2010Q4

REPORT INFORMATION
  Report Type: 
  Country: None (occurrence: None)
  Receive Date: 20101217
  Receipt Date: 20101209
  Transmission Date: 20110411
  Serious: Yes (Other)
  Sender: FDA-Public Use
  Company Number: ES-PFIZER INC-2010168767

PATIENT
  Age: 55 Year
  Sex: Male

DRUGS (1)
  1. LYRICA [Suspect]
     Indication: GENERALISED ANXIETY DISORDER
     Dosage: 600 MG, DAILY
     Route: 048
     Dates: start: 20090708, end: 20090714

REACTIONS (2)
  - ASTERIXIS [None]
  - PSYCHOMOTOR HYPERACTIVITY [None]
